FAERS Safety Report 20767890 (Version 1)
Quarter: 2022Q2

REPORT INFORMATION
  Report Type: Spontaneous
  Country: US (occurrence: US)
  Receive Date: 20220429
  Receipt Date: 20220429
  Transmission Date: 20220721
  Serious: No
  Sender: FDA-Public Use
  Company Number: US-009507513-2203USA010884

PATIENT
  Age: 58 Year
  Sex: Male
  Weight: 86.2 kg

DRUGS (7)
  1. IMIPENEM AND CILASTATIN [Suspect]
     Active Substance: CILASTATIN SODIUM\IMIPENEM
     Dosage: UNK
     Route: 042
     Dates: start: 202202
  2. NUZYRA [Suspect]
     Active Substance: OMADACYCLINE
     Indication: Mycobacterial infection
     Dosage: 150 MG, 1X/DAY
     Route: 048
     Dates: start: 20210810
  3. ACYCLOVIR [Concomitant]
     Active Substance: ACYCLOVIR
  4. METACYCLINE [Concomitant]
  5. VITAMIN B12 [Concomitant]
     Active Substance: CYANOCOBALAMIN
     Indication: Routine health maintenance
  6. FOLATE SODIUM [Concomitant]
     Active Substance: FOLATE SODIUM
     Indication: Routine health maintenance
  7. CHOLECALCIFEROL [Concomitant]
     Active Substance: CHOLECALCIFEROL
     Indication: Routine health maintenance

REACTIONS (3)
  - Nausea [Not Recovered/Not Resolved]
  - Vomiting [Not Recovered/Not Resolved]
  - Off label use [Unknown]

NARRATIVE: CASE EVENT DATE: 20210810
